FAERS Safety Report 18381006 (Version 6)
Quarter: 2022Q3

REPORT INFORMATION
  Report Type: Spontaneous
  Country: CO (occurrence: CO)
  Receive Date: 20201014
  Receipt Date: 20220713
  Transmission Date: 20221027
  Serious: Yes (Other)
  Sender: FDA-Public Use
  Company Number: CO-GLAXOSMITHKLINE-CO2020AMR085196

PATIENT

DRUGS (8)
  1. NUCALA [Suspect]
     Active Substance: MEPOLIZUMAB
     Indication: Asthma
     Dosage: 100 MG, Z (MONTHLY)
     Route: 058
  2. FLUTICASONE FUROATE [Suspect]
     Active Substance: FLUTICASONE FUROATE
     Indication: Asthma
     Dosage: 1 DF, BID,EACH NOSTRIL
  3. MONTELUKAST [Concomitant]
     Active Substance: MONTELUKAST SODIUM
     Indication: Product used for unknown indication
     Dosage: 10 MG, QD
  4. PREDNISOLONE [Concomitant]
     Active Substance: PREDNISOLONE
     Indication: Product used for unknown indication
     Dosage: 50 MG
  5. SYMBICORT [Concomitant]
     Active Substance: BUDESONIDE\FORMOTEROL FUMARATE DIHYDRATE
     Indication: Product used for unknown indication
     Dosage: 1 PUFF(S), TID
     Route: 055
  6. TIOTROPIUM [Concomitant]
     Active Substance: TIOTROPIUM
     Indication: Product used for unknown indication
     Dosage: 2 PUFF(S), QD
     Route: 055
  7. IPRATROPIUM BROMIDE [Concomitant]
     Active Substance: IPRATROPIUM BROMIDE
     Indication: Asthmatic crisis
     Dosage: 2 PUFF(S), Z, EVERY 10 MIN
     Route: 055
  8. DESLORATADINE [Concomitant]
     Active Substance: DESLORATADINE
     Indication: Product used for unknown indication
     Dosage: 5 MG

REACTIONS (15)
  - Asthmatic crisis [Unknown]
  - Respiratory disorder [Recovering/Resolving]
  - Malaise [Recovering/Resolving]
  - Chest pain [Recovering/Resolving]
  - Costochondritis [Recovering/Resolving]
  - Oedema peripheral [Recovering/Resolving]
  - Erythema [Unknown]
  - Headache [Unknown]
  - Arthralgia [Unknown]
  - Arthritis [Unknown]
  - SARS-CoV-2 test negative [Unknown]
  - Patient isolation [Unknown]
  - Product use issue [Unknown]
  - Social problem [Unknown]
  - Product use in unapproved indication [Unknown]

NARRATIVE: CASE EVENT DATE: 20200925
